FAERS Safety Report 4992889-2 (Version None)
Quarter: 2006Q2

REPORT INFORMATION
  Report Type: 
  Country: None (occurrence: None)
  Receive Date: 20060504
  Receipt Date: 20051017
  Transmission Date: 20061013
  Serious: Yes (Hospitalization, Other)
  Sender: FDA-Public Use
  Company Number: US-MERCK-0510USA07694

PATIENT
  Age: 59 Year
  Sex: Male
  Weight: 100 kg

DRUGS (8)
  1. VIOXX [Suspect]
     Indication: ARTHRITIS
     Route: 048
     Dates: start: 20000101, end: 20040930
  2. TOPROL-XL [Concomitant]
     Route: 065
  3. PROTONIX [Concomitant]
     Indication: GASTROOESOPHAGEAL REFLUX DISEASE
     Route: 065
  4. DIATX [Concomitant]
     Route: 065
  5. ALLOPURINOL [Concomitant]
     Indication: GOUT
     Route: 065
  6. PLETAL [Concomitant]
     Route: 065
  7. NEURONTIN [Concomitant]
     Indication: PAIN
     Route: 065
  8. RENAGEL [Concomitant]
     Route: 065

REACTIONS (33)
  - ACUTE MYOCARDIAL INFARCTION [None]
  - ANGINA UNSTABLE [None]
  - ANXIETY DISORDER [None]
  - BLOOD CULTURE POSITIVE [None]
  - BLOOD PHOSPHORUS INCREASED [None]
  - CELLULITIS [None]
  - CEREBROVASCULAR ACCIDENT [None]
  - CORONARY ARTERY DISEASE [None]
  - DEHYDRATION [None]
  - DEPRESSION [None]
  - DIALYSIS [None]
  - DUODENITIS [None]
  - EROSIVE OESOPHAGITIS [None]
  - FUNGAL RASH [None]
  - GANGRENE [None]
  - GASTRIC ULCER [None]
  - GASTRIC ULCER HAEMORRHAGE [None]
  - HAEMATEMESIS [None]
  - HAEMOPHILUS INFECTION [None]
  - HYPOTENSION [None]
  - IMPAIRED HEALING [None]
  - LEG AMPUTATION [None]
  - MELAENA [None]
  - MUSCULOSKELETAL DISORDER [None]
  - MYOCARDIAL INFARCTION [None]
  - NECROSIS [None]
  - RENAL FAILURE CHRONIC [None]
  - SKIN ULCER [None]
  - TACHYCARDIA [None]
  - THERAPY NON-RESPONDER [None]
  - THROMBOPHLEBITIS SUPERFICIAL [None]
  - UPPER GASTROINTESTINAL HAEMORRHAGE [None]
  - VASCULAR PSEUDOANEURYSM [None]
